FAERS Safety Report 9222687 (Version 1)
Quarter: 2013Q1

REPORT INFORMATION
  Report Type: Spontaneous
  Country: US (occurrence: US)
  Receive Date: 20120914
  Receipt Date: 20120914
  Transmission Date: 20140127
  Serious: Yes (Other)
  Sender: FDA-Public Use
  Company Number: JPI-P-016999

PATIENT
  Age: 56 Year
  Sex: Female
  Weight: 58.97 kg

DRUGS (7)
  1. XYREM (500 MG/ML SOLUTION)(SODIUM OXYBATE) [Suspect]
     Indication: FIBROMYALGIA
     Route: 048
     Dates: start: 200812
  2. PERCOCET (OXYCODONE/PARACETAMOL) [Concomitant]
  3. CYMBALTA (DULOXETINE) [Concomitant]
  4. LAMOTRIGINE [Concomitant]
  5. METHYLIN [Concomitant]
  6. ESTROGEN PATCH [Concomitant]
  7. PROMETRIUM (UTROGESTAN) [Concomitant]

REACTIONS (6)
  - Concussion [None]
  - Balance disorder [None]
  - Headache [None]
  - Vision blurred [None]
  - Head injury [None]
  - Fall [None]
